FAERS Safety Report 4283031-4 (Version None)
Quarter: 2004Q1

REPORT INFORMATION
  Report Type: 
  Country: None (occurrence: None)
  Receive Date: 20040129
  Receipt Date: 20040115
  Transmission Date: 20041129
  Serious: Yes (Death)
  Sender: FDA-Public Use
  Company Number: 2004003087

PATIENT
  Age: 18 Year
  Sex: Female
  Weight: 68.0396 kg

DRUGS (6)
  1. GEODON [Suspect]
     Indication: BIPOLAR DISORDER
     Dosage: 20 MG (DAILY), ORAL
     Route: 048
  2. LORAZEPAM [Suspect]
     Indication: BIPOLAR DISORDER
  3. CIPROFLOXACIN [Suspect]
     Indication: UPPER RESPIRATORY TRACT INFECTION
  4. CLAVULIN (CLACULANATE POTASSIUM, AMOXICILLIN TRIHYDRATE) [Suspect]
     Indication: UPPER RESPIRATORY TRACT INFECTION
  5. OXCARBAZEPINE (OXCARBAZEPINE) [Suspect]
     Indication: BIPOLAR DISORDER
  6. QUETIAPINE FUMARATE (QUETIAPINE FUMARATE) [Suspect]
     Indication: BIPOLAR DISORDER
     Dosage: 100 MG (DAILY), ORAL
     Route: 048

REACTIONS (23)
  - ANOXIC ENCEPHALOPATHY [None]
  - BRAIN DEATH [None]
  - BRAIN HERNIATION [None]
  - BRAIN OEDEMA [None]
  - COMA [None]
  - CORNEAL OPACITY [None]
  - GRAND MAL CONVULSION [None]
  - HEPATIC ENCEPHALOPATHY [None]
  - HEPATIC FAILURE [None]
  - HEPATIC NECROSIS [None]
  - LIVER FUNCTION TEST ABNORMAL [None]
  - LIVER TRANSPLANT [None]
  - LIVER TRANSPLANT REJECTION [None]
  - LYMPHADENOPATHY [None]
  - MENTAL STATUS CHANGES [None]
  - POST PROCEDURAL COMPLICATION [None]
  - PULMONARY ALVEOLAR HAEMORRHAGE [None]
  - PULMONARY CONGESTION [None]
  - RASH [None]
  - RENAL TUBULAR NECROSIS [None]
  - RESPIRATORY FAILURE [None]
  - UPPER RESPIRATORY TRACT INFECTION [None]
  - VARICES OESOPHAGEAL [None]
